FAERS Safety Report 4512998-1 (Version None)
Quarter: 2004Q4

REPORT INFORMATION
  Report Type: 
  Country: None (occurrence: None)
  Receive Date: 20041127
  Receipt Date: 20041127
  Transmission Date: 20050328
  Serious: Yes (Hospitalization)
  Sender: FDA-Public Use
  Company Number: None

PATIENT
  Age: 55 Year
  Sex: Female
  Weight: 60 kg

DRUGS (5)
  1. IRINOTECAN 84 MG [Suspect]
     Indication: PANCREATIC CARCINOMA
     Dosage: IV Q WEEK X 4
     Route: 042
     Dates: start: 20040831
  2. IRINOTECAN 84 MG [Suspect]
     Indication: PANCREATIC CARCINOMA
     Dosage: IV Q WEEK X 4
     Route: 042
     Dates: start: 20040908
  3. IRINOTECAN 84 MG [Suspect]
     Indication: PANCREATIC CARCINOMA
     Dosage: IV Q WEEK X 4
     Route: 042
     Dates: start: 20040915
  4. IRINOTECAN 84 MG [Suspect]
     Indication: PANCREATIC CARCINOMA
     Dosage: IV Q WEEK X 4
     Route: 042
     Dates: start: 20040922
  5. DOCETAXEL 58 MG [Suspect]
     Indication: PANCREATIC CARCINOMA
     Dosage: IV Q WEEK X 4
     Route: 042

REACTIONS (2)
  - CHILLS [None]
  - PYREXIA [None]
